FAERS Safety Report 23676423 (Version 1)
Quarter: 2024Q1

REPORT INFORMATION
  Report Type: Spontaneous
  Country: CN (occurrence: None)
  Receive Date: 20240327
  Receipt Date: 20240327
  Transmission Date: 20240410
  Serious: Yes (Life-Threatening)
  Sender: FDA-Public Use
  Company Number: 2024A073291

PATIENT
  Age: 19629 Day
  Sex: Male
  Weight: 78 kg

DRUGS (5)
  1. BRILINTA [Suspect]
     Active Substance: TICAGRELOR
     Indication: Acute coronary syndrome
     Route: 048
     Dates: start: 20240303, end: 20240309
  2. EPTIFIBATIDE [Suspect]
     Active Substance: EPTIFIBATIDE
     Indication: Acute coronary syndrome
     Route: 030
     Dates: start: 20240303, end: 20240304
  3. INDOBUFEN [Suspect]
     Active Substance: INDOBUFEN
     Indication: Acute coronary syndrome
     Route: 048
     Dates: start: 20240303, end: 20240309
  4. SULODEXIDE [Suspect]
     Active Substance: SULODEXIDE
     Indication: Acute coronary syndrome
     Route: 030
     Dates: start: 20240309, end: 20240309
  5. SODIUM CHLORIDE [Concomitant]
     Active Substance: SODIUM CHLORIDE

REACTIONS (1)
  - Gastrointestinal haemorrhage [Recovering/Resolving]

NARRATIVE: CASE EVENT DATE: 20240309
